FAERS Safety Report 4648952-9 (Version None)
Quarter: 2005Q2

REPORT INFORMATION
  Report Type: 
  Country: None (occurrence: None)
  Receive Date: 20050427
  Receipt Date: 20050411
  Transmission Date: 20051028
  Serious: Yes (Hospitalization, Other)
  Sender: FDA-Public Use
  Company Number: US_0504115400

PATIENT
  Age: 71 Year
  Sex: Female
  Weight: 91 kg

DRUGS (2)
  1. FORTEO [Suspect]
     Indication: OSTEOPOROSIS
     Dates: start: 20040901
  2. LEVETIRACETAM [Suspect]

REACTIONS (7)
  - ANKLE FRACTURE [None]
  - CONVULSION [None]
  - FALL [None]
  - FATIGUE [None]
  - FIBULA FRACTURE [None]
  - MALAISE [None]
  - PHARMACEUTICAL PRODUCT COMPLAINT [None]
